FAERS Safety Report 17594262 (Version 1)
Quarter: 2020Q1

REPORT INFORMATION
  Report Type: Report from Study
  Country: US (occurrence: US)
  Receive Date: 20200328
  Receipt Date: 20200328
  Transmission Date: 20200409
  Serious: No
  Sender: FDA-Public Use
  Company Number: NVSC2020US081504

PATIENT
  Age: 66 Year
  Sex: Female

DRUGS (3)
  1. COSENTYX [Suspect]
     Active Substance: SECUKINUMAB
     Dosage: 300 MG, QW (BENEATH THE SKIN, UUALLY VIA INJECTION)
     Route: 058
     Dates: start: 20200121, end: 20200121
  2. COSENTYX [Suspect]
     Active Substance: SECUKINUMAB
     Indication: PSORIASIS
     Dosage: 300 MG, QW (BENEATH THE SKIN, UUALLY VIA INJECTION)
     Route: 058
     Dates: start: 20200107
  3. COSENTYX [Suspect]
     Active Substance: SECUKINUMAB
     Dosage: 300 MG, QW (BENEATH THE SKIN, UUALLY VIA INJECTION)
     Route: 058
     Dates: start: 20200114

REACTIONS (2)
  - Diarrhoea [Unknown]
  - Psoriasis [Unknown]

NARRATIVE: CASE EVENT DATE: 20200121
